FAERS Safety Report 18702086 (Version 1)
Quarter: 2021Q1

REPORT INFORMATION
  Report Type: Spontaneous
  Country: US (occurrence: US)
  Receive Date: 20210105
  Receipt Date: 20210105
  Transmission Date: 20210419
  Serious: No
  Sender: FDA-Public Use
  Company Number: US-PFIZER INC-2020519913

PATIENT
  Age: 90 Year
  Sex: Male

DRUGS (3)
  1. VYNDAMAX [Suspect]
     Active Substance: TAFAMIDIS
     Indication: DIASTOLIC DYSFUNCTION
  2. VYNDAMAX [Suspect]
     Active Substance: TAFAMIDIS
     Indication: CARDIAC AMYLOIDOSIS
  3. VYNDAMAX [Suspect]
     Active Substance: TAFAMIDIS
     Indication: CARDIAC FAILURE

REACTIONS (8)
  - Tenderness [Unknown]
  - Peripheral swelling [Unknown]
  - Skin fissures [Unknown]
  - Arthralgia [Unknown]
  - Erythema [Unknown]
  - Hyperaesthesia [Unknown]
  - Pain [Unknown]
  - Dermatitis [Unknown]
